FAERS Safety Report 5282219-3 (Version None)
Quarter: 2007Q1

REPORT INFORMATION
  Report Type: 
  Country: None (occurrence: None)
  Receive Date: 20070330
  Receipt Date: 20070319
  Transmission Date: 20070707
  Serious: Yes (Other)
  Sender: FDA-Public Use
  Company Number: US-PFIZER INC-2007021800

PATIENT
  Sex: Female
  Weight: 49.4 kg

DRUGS (8)
  1. CHANTIX [Suspect]
     Indication: EX-SMOKER
  2. IBUPROFEN [Concomitant]
  3. TYLENOL [Concomitant]
  4. CELEXA [Concomitant]
  5. ADVAIR DISKUS 100/50 [Concomitant]
  6. SPIRIVA [Concomitant]
  7. ALBUTEROL [Concomitant]
  8. DUONEB [Concomitant]

REACTIONS (8)
  - DYSGEUSIA [None]
  - HAEMORRHAGE [None]
  - NAUSEA [None]
  - PAIN [None]
  - PAROSMIA [None]
  - TOOTH ABSCESS [None]
  - TOOTH EXTRACTION [None]
  - VOMITING [None]
